FAERS Safety Report 22276826 (Version 1)
Quarter: 2023Q2

REPORT INFORMATION
  Report Type: Spontaneous
  Country: FR (occurrence: FR)
  Receive Date: 20230503
  Receipt Date: 20230503
  Transmission Date: 20230722
  Serious: Yes (Hospitalization, Other)
  Sender: FDA-Public Use
  Company Number: None

PATIENT
  Age: 91 Year
  Sex: Female
  Weight: 50 kg

DRUGS (4)
  1. HEPARIN SODIUM [Interacting]
     Active Substance: HEPARIN SODIUM
     Indication: Anticoagulant therapy
     Dosage: 500 IU/HR FOR 24 H
     Route: 042
     Dates: start: 20211005, end: 20211007
  2. LOVENOX [Interacting]
     Active Substance: ENOXAPARIN SODIUM
     Indication: Aortic valve replacement
     Dosage: ANTI-XA/0.2 ML, INJECTABLE SOLUTION IN CARTRIDGE
     Route: 058
     Dates: start: 20211006, end: 20211007
  3. RAMIPRIL [Concomitant]
     Active Substance: RAMIPRIL
  4. KARDEGIC [Concomitant]
     Active Substance: ASPIRIN DL-LYSINE
     Dosage: POWDER FOR ORAL SOLUTION IN SACHET

REACTIONS (2)
  - Heparin-induced thrombocytopenia [Recovered/Resolved]
  - Bicytopenia [Unknown]

NARRATIVE: CASE EVENT DATE: 20211006
